FAERS Safety Report 9169238 (Version 1)
Quarter: 2013Q1

REPORT INFORMATION
  Report Type: Spontaneous
  Country: IN (occurrence: IN)
  Receive Date: 20130318
  Receipt Date: 20130318
  Transmission Date: 20140127
  Serious: Yes (Other)
  Sender: FDA-Public Use
  Company Number: IN-PFIZER INC-2013085650

PATIENT
  Sex: Male

DRUGS (1)
  1. MINIPRESS [Suspect]
     Route: 048

REACTIONS (2)
  - Lacunar infarction [Unknown]
  - Cerebral microangiopathy [Unknown]
